FAERS Safety Report 8993614 (Version 1)
Quarter: 2013Q1

REPORT INFORMATION
  Report Type: Spontaneous
  Country: US (occurrence: US)
  Receive Date: 20130102
  Receipt Date: 20130102
  Transmission Date: 20140127
  Serious: Yes (Death)
  Sender: FDA-Public Use
  Company Number: US-BRISTOL-MYERS SQUIBB COMPANY-17239013

PATIENT
  Age: 84 Year
  Sex: Male

DRUGS (1)
  1. COUMADIN [Suspect]
     Indication: ATRIAL FIBRILLATION
     Dosage: INCREASED FROM 17.5MG/WEEK (TOTAL) TO 22.5MG/WEEK

REACTIONS (1)
  - Death [Fatal]
